FAERS Safety Report 6082267-X (Version None)
Quarter: 2009Q1

REPORT INFORMATION
  Report Type: 
  Country: None (occurrence: None)
  Receive Date: 20090123
  Receipt Date: 20080214
  Transmission Date: 20090719
  Serious: Yes (Other)
  Sender: FDA-Public Use
  Company Number: 547327

PATIENT
  Age: 68 Year
  Sex: Male

DRUGS (2)
  1. VESANOID [Suspect]
     Indication: DRUG USE FOR UNKNOWN INDICATION
     Dates: start: 20080212
  2. EPIRUBICIN [Concomitant]

REACTIONS (2)
  - LUNG INFILTRATION [None]
  - RESPIRATORY DISTRESS [None]
